FAERS Safety Report 8969149 (Version 1)
Quarter: 2012Q4

REPORT INFORMATION
  Report Type: Spontaneous
  Country: US (occurrence: None)
  Receive Date: 20121214
  Receipt Date: 20121214
  Transmission Date: 20130627
  Serious: Yes (Disabling)
  Sender: FDA-Public Use
  Company Number: None

PATIENT
  Age: 54 Year
  Sex: Female
  Weight: 61.24 kg

DRUGS (1)
  1. MITOMYCIN [Suspect]
     Indication: PHOTOREFRACTIVE KERATECTOMY
     Dosage: 0.02 percent during surgery
     Dates: start: 20120315, end: 20120315

REACTIONS (3)
  - Intentional drug misuse [None]
  - Product contamination [None]
  - Adverse event [None]
